FAERS Safety Report 12744961 (Version 3)
Quarter: 2016Q4

REPORT INFORMATION
  Report Type: Spontaneous
  Country: US (occurrence: US)
  Receive Date: 20160915
  Receipt Date: 20161203
  Transmission Date: 20170207
  Serious: No
  Sender: FDA-Public Use
  Company Number: US-ASTRAZENECA-2016SE95019

PATIENT
  Age: 824 Month
  Sex: Female
  Weight: 98.9 kg

DRUGS (2)
  1. BYDUREON [Suspect]
     Active Substance: EXENATIDE
     Route: 058
  2. BYDUREON [Suspect]
     Active Substance: EXENATIDE
     Route: 058
     Dates: start: 20160901

REACTIONS (6)
  - Glycosylated haemoglobin increased [Unknown]
  - Injection site mass [Unknown]
  - Drug dose omission [Unknown]
  - Product preparation error [Unknown]
  - Device malfunction [Unknown]
  - Product label issue [Unknown]

NARRATIVE: CASE EVENT DATE: 201609
